FAERS Safety Report 17094008 (Version 9)
Quarter: 2020Q4

REPORT INFORMATION
  Report Type: Report from Study
  Country: IN (occurrence: IN)
  Receive Date: 20191129
  Receipt Date: 20201117
  Transmission Date: 20210113
  Serious: Yes (Hospitalization, Other)
  Sender: FDA-Public Use
  Company Number: IN-GLAXOSMITHKLINE-IN2019GSK117253

PATIENT
  Age: 75 Year
  Sex: Male
  Weight: 78 kg

DRUGS (13)
  1. HUMAN INSULIN INJECTION [Concomitant]
     Dosage: UNK
     Route: 042
     Dates: start: 20180618
  2. APRESOL TABLET [Concomitant]
     Dosage: UNK
     Route: 048
     Dates: start: 20180618
  3. PANTOCID TABLET [Concomitant]
     Dosage: UNK
     Route: 048
     Dates: start: 20180618
  4. BLINDED DARBEPOETIN ALFA [Suspect]
     Active Substance: DARBEPOETIN ALFA
     Indication: NEPHROGENIC ANAEMIA
     Dosage: UNK
     Dates: start: 20180621
  5. BLINDED EPOETIN ALFA [Suspect]
     Active Substance: ERYTHROPOIETIN
     Indication: NEPHROGENIC ANAEMIA
     Dosage: UNK
     Dates: start: 20180621
  6. NODOSIS TABLET [Concomitant]
     Dosage: UNK
     Route: 048
     Dates: start: 20180618
  7. CLOPILET TABLET [Concomitant]
     Dosage: UNK
     Route: 048
     Dates: start: 20180618
  8. CLAVAM [Suspect]
     Active Substance: AMOXICILLIN\CLAVULANIC ACID
     Indication: LOCALISED INFECTION
     Dosage: 625 MG
     Route: 042
     Dates: start: 20190607, end: 20190608
  9. BLINDED DARBEPOETIN ALFA [Suspect]
     Active Substance: DARBEPOETIN ALFA
     Indication: NEPHROGENIC ANAEMIA
     Dosage: UNK
     Dates: start: 20180621
  10. CARNITOR [Concomitant]
     Active Substance: LEVOCARNITINE
     Dosage: UNK
     Route: 042
     Dates: start: 20180618
  11. BLINDED DAPRODUSTAT [Suspect]
     Active Substance: DAPRODUSTAT
     Indication: NEPHROGENIC ANAEMIA
     Dosage: UNK
     Dates: start: 20180621
  12. MUPIROCIN. [Suspect]
     Active Substance: MUPIROCIN
     Indication: LOCALISED INFECTION
     Dosage: 5 G
     Route: 061
     Dates: start: 20190607, end: 20190608
  13. ARKAMIN TABLET [Concomitant]
     Dosage: UNK
     Route: 048
     Dates: start: 20180618

REACTIONS (1)
  - Burn infection [Recovered/Resolved]

NARRATIVE: CASE EVENT DATE: 20190608
